FAERS Safety Report 21648147 (Version 2)
Quarter: 2022Q4

REPORT INFORMATION
  Report Type: Spontaneous
  Country: US (occurrence: US)
  Receive Date: 20221128
  Receipt Date: 20221209
  Transmission Date: 20230112
  Serious: No
  Sender: FDA-Public Use
  Company Number: US-BRISTOL-MYERS SQUIBB COMPANY-2022-143732

PATIENT
  Age: 82 Year
  Sex: Male
  Weight: 68.04 kg

DRUGS (1)
  1. REVLIMID [Suspect]
     Active Substance: LENALIDOMIDE
     Indication: Plasmacytoma
     Dosage: 3W, 1W OFF
     Route: 048
     Dates: start: 20221020, end: 20221125

REACTIONS (2)
  - Full blood count decreased [Unknown]
  - Off label use [Unknown]
